FAERS Safety Report 6401315-8 (Version None)
Quarter: 2009Q4

REPORT INFORMATION
  Report Type: 
  Country: None (occurrence: None)
  Receive Date: 20091015
  Receipt Date: 20070322
  Transmission Date: 20100525
  Serious: Yes (Disabling)
  Sender: FDA-Public Use
  Company Number: US-ASTRAZENECA-2006UW08351

PATIENT
  Sex: Female

DRUGS (15)
  1. SEROQUEL [Suspect]
     Route: 048
     Dates: start: 20051122
  2. BENTYL [Concomitant]
     Route: 048
     Dates: start: 20060810
  3. CARDIZEM LA [Concomitant]
     Route: 048
     Dates: start: 20051128
  4. FOLIC ACID [Concomitant]
     Route: 048
     Dates: start: 20051211
  5. GLUCOPHAGE [Concomitant]
     Route: 048
     Dates: start: 20060810
  6. MICARDIS [Concomitant]
     Route: 048
     Dates: start: 20060810
  7. SYNTHROID [Concomitant]
     Route: 048
     Dates: start: 20060810
  8. VYTORIN [Concomitant]
     Dosage: 10/20 QHS
     Dates: start: 20051128
  9. LEXAPRO [Concomitant]
     Route: 048
     Dates: start: 20051122
  10. NORCO [Concomitant]
     Route: 048
     Dates: start: 20061109
  11. REGLAN [Concomitant]
     Route: 048
     Dates: start: 20061109
  12. SINGULAIR [Concomitant]
     Route: 048
     Dates: start: 20061109
  13. THEO-DUR [Concomitant]
     Dates: start: 20061109
  14. TRICOR [Concomitant]
     Route: 048
     Dates: start: 20061109
  15. PREVACID [Concomitant]
     Dates: start: 20051211

REACTIONS (1)
  - ILL-DEFINED DISORDER [None]
